FAERS Safety Report 15525297 (Version 1)
Quarter: 2018Q4

REPORT INFORMATION
  Report Type: Report from Study
  Country: FR (occurrence: FR)
  Receive Date: 20181018
  Receipt Date: 20181018
  Transmission Date: 20190205
  Serious: Yes (Other)
  Sender: FDA-Public Use
  Company Number: FR-ASTRAZENECA-2018SF35456

PATIENT
  Age: 23954 Day
  Sex: Female
  Weight: 74 kg

DRUGS (3)
  1. LEVOTHYROX [Concomitant]
     Active Substance: LEVOTHYROXINE
     Indication: HYPOTHYROIDISM
     Route: 048
     Dates: start: 20180926
  2. DURVALUMAB. [Suspect]
     Active Substance: DURVALUMAB
     Indication: NON-SMALL CELL LUNG CANCER
     Dosage: 725 MILLIGRAMS
     Route: 042
     Dates: start: 20180718
  3. RADIOTHERAPY [Suspect]
     Active Substance: RADIATION THERAPY
     Dosage: TOTAL DOSE 66 GRAY
     Route: 065
     Dates: start: 20180417, end: 20180605

REACTIONS (2)
  - Pulmonary radiation injury [Unknown]
  - Interstitial lung disease [Unknown]

NARRATIVE: CASE EVENT DATE: 20181003
